FAERS Safety Report 5741297-5 (Version None)
Quarter: 2008Q2

REPORT INFORMATION
  Report Type: 
  Country: None (occurrence: None)
  Receive Date: 20080514
  Receipt Date: 20080507
  Transmission Date: 20081010
  Serious: Yes (Hospitalization)
  Sender: FDA-Public Use
  Company Number: 2008SP007716

PATIENT
  Age: 57 Year
  Sex: Male
  Weight: 107.5025 kg

DRUGS (2)
  1. PEG-INTRON [Suspect]
     Indication: HEPATITIS C
     Dosage: SC
     Route: 058
     Dates: start: 20070912
  2. RIBAVIRIN [Suspect]
     Indication: HEPATITIS C
     Dosage: PO
     Route: 048
     Dates: start: 20070912

REACTIONS (14)
  - AGGRESSION [None]
  - ANOREXIA [None]
  - BACK DISORDER [None]
  - COUGH [None]
  - DRY MOUTH [None]
  - EXPOSURE TO COMMUNICABLE DISEASE [None]
  - INSOMNIA [None]
  - POLLAKIURIA [None]
  - PYREXIA [None]
  - ROAD TRAFFIC ACCIDENT [None]
  - SLEEP TALKING [None]
  - SNORING [None]
  - TINNITUS [None]
  - WEIGHT DECREASED [None]
